FAERS Safety Report 5701792-1 (Version None)
Quarter: 2008Q2

REPORT INFORMATION
  Report Type: 
  Country: None (occurrence: None)
  Receive Date: 20080410
  Receipt Date: 20080410
  Transmission Date: 20081010
  Serious: No
  Sender: FDA-Public Use
  Company Number: None

PATIENT
  Age: 28 Year
  Sex: Female

DRUGS (1)
  1. ZOMIG [Suspect]
     Dosage: 2.5 MG 1 TAB; REPEAT AFTER 2 HOURS PO
     Route: 048
     Dates: start: 20080310

REACTIONS (2)
  - FLUSHING [None]
  - PARAESTHESIA [None]
